FAERS Safety Report 17236816 (Version 8)
Quarter: 2020Q2

REPORT INFORMATION
  Report Type: Report from Study
  Country: CA (occurrence: CA)
  Receive Date: 20200106
  Receipt Date: 20200428
  Transmission Date: 20200713
  Serious: Yes (Other)
  Sender: FDA-Public Use
  Company Number: CA-PFIZER INC-2020000546

PATIENT
  Age: 51 Year
  Sex: Female

DRUGS (7)
  1. ARTHROTEC [Suspect]
     Active Substance: DICLOFENAC SODIUM\MISOPROSTOL
     Indication: ARTHRITIS
     Dosage: UNK
  2. ENTYVIO [Suspect]
     Active Substance: VEDOLIZUMAB
     Indication: COLITIS ULCERATIVE
     Dosage: 300 MG, CYCLIC (WEEK 0,2,6, EVERY 8 WEEKS)
     Route: 042
     Dates: start: 20191122
  3. ENTYVIO [Suspect]
     Active Substance: VEDOLIZUMAB
     Dosage: 300 MG, UNK
     Route: 042
  4. ENTYVIO [Suspect]
     Active Substance: VEDOLIZUMAB
     Dosage: 300 MG, UNK
     Route: 042
  5. ENTYVIO [Suspect]
     Active Substance: VEDOLIZUMAB
     Dosage: 300 MG, CYCLIC (WEEK 0,2,6, EVERY 8 WEEKS)
     Route: 042
  6. TYLENOL [Suspect]
     Active Substance: ACETAMINOPHEN
     Indication: PAIN
     Dosage: UNK
  7. PANTOPRAZOLE [Suspect]
     Active Substance: PANTOPRAZOLE
     Indication: GASTROOESOPHAGEAL REFLUX DISEASE
     Dosage: 40 MG, 1X/DAY

REACTIONS (25)
  - Abnormal faeces [Unknown]
  - Oropharyngeal pain [Unknown]
  - Colitis ulcerative [Unknown]
  - Gait disturbance [Not Recovered/Not Resolved]
  - Nasopharyngitis [Not Recovered/Not Resolved]
  - Pharyngitis streptococcal [Unknown]
  - Arthralgia [Not Recovered/Not Resolved]
  - Flatulence [Unknown]
  - Myalgia [Not Recovered/Not Resolved]
  - Pain in extremity [Unknown]
  - Nausea [Unknown]
  - Abdominal discomfort [Unknown]
  - Arthritis [Unknown]
  - Diarrhoea [Unknown]
  - Feeling abnormal [Not Recovered/Not Resolved]
  - Headache [Unknown]
  - Back pain [Unknown]
  - Ear congestion [Unknown]
  - Gastrooesophageal reflux disease [Unknown]
  - Abdominal pain [Unknown]
  - Faecal calprotectin increased [Recovered/Resolved]
  - Pain [Unknown]
  - Musculoskeletal pain [Unknown]
  - Lymphadenopathy [Not Recovered/Not Resolved]
  - Alopecia [Unknown]

NARRATIVE: CASE EVENT DATE: 20200126
